FAERS Safety Report 5849482-9 (Version None)
Quarter: 2008Q3

REPORT INFORMATION
  Report Type: 
  Country: None (occurrence: None)
  Receive Date: 20080815
  Receipt Date: 20080801
  Transmission Date: 20090109
  Serious: Yes (Life-Threatening)
  Sender: FDA-Public Use
  Company Number: 2008S1013814

PATIENT
  Age: 83 Year
  Sex: Male

DRUGS (1)
  1. TICLOPIDINA MERCK GENERICS (TICLOPIDINE) [Suspect]
     Indication: ARTERIOGRAM CORONARY
     Dosage: 250 MG;TABLET;ORAL;DAILY
     Route: 048
     Dates: start: 20080617, end: 20080627

REACTIONS (1)
  - SEPTIC SHOCK [None]
